FAERS Safety Report 4274928-X (Version None)
Quarter: 2004Q1

REPORT INFORMATION
  Report Type: 
  Country: None (occurrence: None)
  Receive Date: 20040120
  Receipt Date: 20030130
  Transmission Date: 20041129
  Serious: Yes (Hospitalization, Disabling)
  Sender: FDA-Public Use
  Company Number: WAES 0302USA00098

PATIENT
  Age: 77 Year
  Sex: Male
  Weight: 90 kg

DRUGS (11)
  1. IMURAN [Concomitant]
  2. TAGAMET [Concomitant]
  3. DIGOXIN [Concomitant]
  4. TIAZAC [Concomitant]
  5. LASIX [Concomitant]
  6. GLIPIZIDE [Concomitant]
  7. MOTRIN [Concomitant]
     Dates: start: 19900101, end: 20010101
  8. PREDNISONE [Concomitant]
  9. VIOXX [Suspect]
     Indication: RHEUMATOID ARTHRITIS
     Route: 048
     Dates: start: 19990101, end: 20010910
  10. VIOXX [Suspect]
     Indication: OSTEOARTHRITIS
     Route: 048
     Dates: start: 19990101, end: 20010910
  11. FLOMAX [Concomitant]
     Dates: start: 19990101

REACTIONS (5)
  - ANGINA PECTORIS [None]
  - ATRIAL FIBRILLATION [None]
  - CARDIAC FAILURE CONGESTIVE [None]
  - CEREBROVASCULAR ACCIDENT [None]
  - EMOTIONAL DISTRESS [None]
